FAERS Safety Report 19810596 (Version 2)
Quarter: 2021Q3

REPORT INFORMATION
  Report Type: Other
  Country: US (occurrence: US)
  Receive Date: 20210909
  Receipt Date: 20210929
  Transmission Date: 20211014
  Serious: Yes (Other)
  Sender: FDA-Public Use
  Company Number: US-ROCHE-2907561

PATIENT
  Sex: Female

DRUGS (19)
  1. SINGULARIS SUPERIOR ASHWAGANDHA FORTE [Concomitant]
  2. BENADRYL [Concomitant]
     Active Substance: DIPHENHYDRAMINE HYDROCHLORIDE
  3. ZYRTEC (UNITED STATES) [Concomitant]
  4. XOLAIR [Suspect]
     Active Substance: OMALIZUMAB
     Indication: ASTHMA
  5. PREDNISONE. [Concomitant]
     Active Substance: PREDNISONE
  6. SUMATRIPTAN. [Concomitant]
     Active Substance: SUMATRIPTAN
  7. XOLAIR [Suspect]
     Active Substance: OMALIZUMAB
     Indication: MIGRAINE WITH AURA
     Route: 058
  8. XOLAIR [Suspect]
     Active Substance: OMALIZUMAB
     Indication: URTICARIA
  9. XOLAIR [Suspect]
     Active Substance: OMALIZUMAB
     Indication: RUBBER SENSITIVITY
  10. ALPRAZOLAM. [Concomitant]
     Active Substance: ALPRAZOLAM
  11. XOLAIR [Suspect]
     Active Substance: OMALIZUMAB
     Indication: CONJUNCTIVITIS ALLERGIC
  12. XOLAIR [Suspect]
     Active Substance: OMALIZUMAB
     Indication: FOOD ALLERGY
  13. DOXEPIN [Concomitant]
     Active Substance: DOXEPIN
  14. XOLAIR [Suspect]
     Active Substance: OMALIZUMAB
     Indication: IDIOPATHIC URTICARIA
  15. BETAMETHASONE. [Concomitant]
     Active Substance: BETAMETHASONE
  16. ASTELIN [Concomitant]
     Active Substance: AZELASTINE HYDROCHLORIDE
  17. FAMOTIDINE. [Concomitant]
     Active Substance: FAMOTIDINE
  18. FLUTICASONE. [Concomitant]
     Active Substance: FLUTICASONE
  19. ROSUVASTATIN. [Concomitant]
     Active Substance: ROSUVASTATIN

REACTIONS (7)
  - Dyspnoea [Unknown]
  - Rash [Unknown]
  - Angioedema [Unknown]
  - Migraine [Unknown]
  - Urticaria [Unknown]
  - Swelling [Unknown]
  - Diarrhoea [Unknown]
